FAERS Safety Report 10618513 (Version 2)
Quarter: 2014Q4

REPORT INFORMATION
  Report Type: Spontaneous
  Country: US (occurrence: US)
  Receive Date: 20141202
  Receipt Date: 20141202
  Transmission Date: 20150529
  Serious: No
  Sender: FDA-Public Use
  Company Number: US-TEVA-496214USA

PATIENT
  Age: 2 Year
  Sex: Female

DRUGS (1)
  1. AZITHROMYCIN [Suspect]
     Active Substance: AZITHROMYCIN ANHYDROUS
     Indication: RESPIRATORY TRACT INFECTION
     Dosage: 200 MG/5 ML
     Route: 048
     Dates: start: 20140715

REACTIONS (3)
  - Drug ineffective [Unknown]
  - Liquid product physical issue [Unknown]
  - Ear pain [Unknown]

NARRATIVE: CASE EVENT DATE: 201407
